FAERS Safety Report 20878656 (Version 1)
Quarter: 2022Q2

REPORT INFORMATION
  Report Type: Spontaneous
  Country: US (occurrence: US)
  Receive Date: 20220526
  Receipt Date: 20220526
  Transmission Date: 20220721
  Serious: No
  Sender: FDA-Public Use
  Company Number: US-PFIZER INC-202200735576

PATIENT
  Age: 58 Year
  Sex: Female
  Weight: 61.23 kg

DRUGS (4)
  1. PAXLOVID [Suspect]
     Active Substance: NIRMATRELVIR\RITONAVIR
     Indication: COVID-19 treatment
     Dosage: 3 DF, 2X/DAY (THREE TABLETS)
     Dates: start: 20220518
  2. TYLENOL [Concomitant]
     Active Substance: ACETAMINOPHEN
     Dosage: UNK
  3. ADVIL [Concomitant]
     Active Substance: IBUPROFEN
     Dosage: UNK
  4. HIFENAC [ACECLOFENAC] [Concomitant]
     Dosage: UNK

REACTIONS (8)
  - Oropharyngeal pain [Recovered/Resolved]
  - Flatulence [Unknown]
  - Dysgeusia [Unknown]
  - Fatigue [Unknown]
  - Sputum increased [Unknown]
  - Dry throat [Unknown]
  - Burning sensation [Unknown]
  - Upper-airway cough syndrome [Unknown]
